FAERS Safety Report 4353097-1 (Version None)
Quarter: 2004Q2

REPORT INFORMATION
  Report Type: 
  Country: None (occurrence: None)
  Receive Date: 20040429
  Receipt Date: 20040415
  Transmission Date: 20050107
  Serious: Yes (Hospitalization)
  Sender: FDA-Public Use
  Company Number: 2004UW04093

PATIENT
  Age: 41 Year
  Sex: Female

DRUGS (3)
  1. NEXIUM [Suspect]
     Dosage: 40 MG DAILY PO
     Route: 048
     Dates: start: 20030101, end: 20030101
  2. NEXIUM [Suspect]
     Dosage: 80 MG PO
     Route: 048
     Dates: start: 20030101, end: 20030101
  3. NEXIUM [Suspect]
     Dosage: 40 MG DAILY PO
     Route: 048
     Dates: start: 20030101

REACTIONS (3)
  - DIZZINESS [None]
  - HEADACHE [None]
  - NEURALGIA [None]
